FAERS Safety Report 5105205-2 (Version None)
Quarter: 2006Q3

REPORT INFORMATION
  Report Type: 
  Country: None (occurrence: None)
  Receive Date: 20060911
  Receipt Date: 20060822
  Transmission Date: 20061208
  Serious: No
  Sender: FDA-Public Use
  Company Number: US200608005024

PATIENT
  Sex: Female

DRUGS (3)
  1. CYMBALTA [Suspect]
     Dosage: 60 MG; SEE IMAGE
     Dates: start: 20060810, end: 20060812
  2. CYMBALTA [Suspect]
     Dosage: 60 MG; SEE IMAGE
     Dates: start: 20060813, end: 20060820
  3. ELAVIL [Concomitant]

REACTIONS (1)
  - HEPATIC ENZYME INCREASED [None]
